FAERS Safety Report 15776527 (Version 7)
Quarter: 2021Q2

REPORT INFORMATION
  Report Type: Report from Study
  Country: CN (occurrence: CN)
  Receive Date: 20181231
  Receipt Date: 20210609
  Transmission Date: 20210716
  Serious: Yes (Death, Hospitalization)
  Sender: FDA-Public Use
  Company Number: CN-ROCHE-2235584

PATIENT
  Age: 45 Year
  Sex: Female
  Weight: 46.5 kg

DRUGS (16)
  1. TRASTUZUMAB EMTANSINE [Suspect]
     Active Substance: ADO-TRASTUZUMAB EMTANSINE
     Indication: HER2 POSITIVE BREAST CANCER
     Dosage: ON 30/NOV/2018 SHE RECEIVED MOST RECENT DOSE (176.4) OF TRASTUZUMAB EMTANSINE PRIOT TO AE/SAE
     Route: 042
     Dates: start: 20180926
  2. OMEPRAZOLE SODIUM [Concomitant]
     Active Substance: OMEPRAZOLE SODIUM
     Dates: start: 20181130, end: 20181202
  3. LEVOCARNITINE. [Concomitant]
     Active Substance: LEVOCARNITINE
     Dates: start: 20190104, end: 20190105
  4. MUPIROCIN. [Concomitant]
     Active Substance: MUPIROCIN
     Indication: RASH PUSTULAR
     Dates: start: 20181130, end: 20181130
  5. RECOMBINANT HUMAN THROMBOPOIETIN [Concomitant]
     Active Substance: THROMBOPOIETIN
     Indication: PLATELET COUNT DECREASED
     Dates: start: 20181228, end: 20190103
  6. OXYCODONE HYDROCHLORIDE. [Concomitant]
     Active Substance: OXYCODONE HYDROCHLORIDE
     Indication: PAIN
     Dosage: PROLONGED?RELEASE
     Dates: start: 20180926
  7. OMEPRAZOLE SODIUM [Concomitant]
     Active Substance: OMEPRAZOLE SODIUM
     Dates: start: 20190104, end: 20190105
  8. MUPIROCIN. [Concomitant]
     Active Substance: MUPIROCIN
     Dates: start: 20181201, end: 20181201
  9. LENOGRASTIM [Concomitant]
     Active Substance: LENOGRASTIM
     Indication: NEUTROPHIL COUNT DECREASED
  10. RECOMBINANT HUMAN INTERLEUKIN?11 [Concomitant]
     Active Substance: OPRELVEKIN
     Indication: PLATELET COUNT DECREASED
     Dates: start: 20181221, end: 20181227
  11. LENOGRASTIM [Concomitant]
     Active Substance: LENOGRASTIM
     Indication: WHITE BLOOD CELL COUNT DECREASED
     Dates: start: 20181129, end: 20181129
  12. MORPHINE HYDROCHLORIDE [Concomitant]
     Active Substance: MORPHINE HYDROCHLORIDE
     Indication: PAIN
     Dates: start: 20180926
  13. LEVOCARNITINE. [Concomitant]
     Active Substance: LEVOCARNITINE
     Dates: start: 20181130, end: 20181202
  14. XUE KANG KOU FU YE [Concomitant]
     Indication: PLATELET COUNT DECREASED
     Dates: start: 20181221, end: 20190105
  15. IBUPROFEN. [Concomitant]
     Active Substance: IBUPROFEN
     Indication: PYREXIA
     Dates: start: 20181226, end: 20181226
  16. COENZYME COMPLEX [Concomitant]
     Active Substance: UNSPECIFIED INGREDIENT
     Dates: start: 20181130, end: 20181202

REACTIONS (1)
  - Myelosuppression [Not Recovered/Not Resolved]

NARRATIVE: CASE EVENT DATE: 20181221
